FAERS Safety Report 9384589 (Version 2)
Quarter: 2013Q3

REPORT INFORMATION
  Report Type: Report from Study
  Country: US (occurrence: US)
  Receive Date: 20130705
  Receipt Date: 20130813
  Transmission Date: 20140515
  Serious: Yes (Death, Hospitalization, Disabling, Other)
  Sender: FDA-Public Use
  Company Number: US-AMGEN-USACT2013046457

PATIENT
  Age: 58 Year
  Sex: Male
  Weight: 53.55 kg

DRUGS (29)
  1. DARBEPOETIN ALFA [Suspect]
     Indication: ANAEMIA OF MALIGNANT DISEASE
     Dosage: UNK
     Route: 065
     Dates: start: 20130424, end: 20130605
  2. EMEND                              /01627301/ [Concomitant]
     Indication: NAUSEA
     Dosage: 150 MG, UNK
     Dates: start: 20130313, end: 20130515
  3. PHENERGAN                          /00033001/ [Concomitant]
     Indication: NAUSEA
     Dosage: 25 MG, UNK
     Dates: start: 20130424, end: 20130628
  4. VITAMIN B12                        /00056201/ [Concomitant]
     Indication: ANAEMIA VITAMIN B12 DEFICIENCY
     Dosage: 1000 MUG, UNK
     Dates: start: 20130306, end: 20130605
  5. VENTOLIN                           /00139501/ [Concomitant]
     Indication: ASTHMA
     Dosage: 1 UNK, UNK
     Dates: start: 20060615, end: 20130714
  6. EMLA                               /00675501/ [Concomitant]
     Dosage: 1 UNK, UNK
     Dates: start: 20130403, end: 20130714
  7. HYDROCHLOROTHIAZIDE [Concomitant]
     Indication: HYPERTENSION
     Dosage: 12.5 MG, UNK
     Dates: start: 20060615, end: 20130714
  8. SPIRIVA [Concomitant]
     Indication: ASTHMA
     Dosage: 1 UNK, UNK
     Dates: start: 20060615, end: 20130714
  9. MIRALAX                            /00754501/ [Concomitant]
     Indication: CONSTIPATION
     Dosage: 1 UNK, UNK
     Dates: start: 20130306, end: 20130701
  10. DEXAMETHASONE                      /00016002/ [Concomitant]
     Indication: NAUSEA
     Dosage: 10 MG, UNK
     Dates: start: 20130313, end: 20130605
  11. ONDANSETRON [Concomitant]
     Indication: NAUSEA
     Dosage: 4 MG, UNK
     Route: 042
     Dates: start: 20130313, end: 20130714
  12. ONDANSETRON [Concomitant]
     Indication: VOMITING
  13. DEXTROSE W/SODIUM CHLORIDE [Concomitant]
     Indication: DEHYDRATION
     Dosage: 2000 ML, UNK
     Dates: start: 20130313, end: 20130515
  14. MAGNESIUM SULFATE IN DEXTROSE [Concomitant]
     Dosage: 1 G, UNK
     Dates: start: 20130313, end: 20130515
  15. VALSARTAN [Concomitant]
     Indication: HYPERTENSION
     Dosage: 80 MG, UNK
     Dates: start: 20060615, end: 20130714
  16. DURAGESIC                          /00070401/ [Concomitant]
     Indication: PAIN
     Dosage: 50 MUG, UNK
     Dates: start: 20130306, end: 20130515
  17. MANNITOL [Concomitant]
     Dosage: 12.5 G, UNK
     Dates: start: 20130313, end: 20130515
  18. POTASSIUM CHLORIDE [Concomitant]
     Dosage: 20 MEQ, UNK
     Dates: start: 20130313, end: 20130708
  19. OXYCODONE/APAP                     /00867901/ [Concomitant]
     Indication: PAIN
     Dosage: 5 MG, UNK
     Dates: start: 20130302, end: 20130714
  20. GABAPENTIN [Concomitant]
     Indication: PAIN
     Dosage: 300 MG, UNK
     Dates: start: 20130222, end: 20130714
  21. ALPRAZOLAM [Concomitant]
     Indication: INSOMNIA
     Dosage: 1 MG, UNK
     Dates: start: 20100615, end: 20130707
  22. LOSARTAN [Concomitant]
     Indication: HYPERTENSION
     Dosage: 50 MG, UNK
     Dates: start: 20030615, end: 20130714
  23. FOLIC ACID [Concomitant]
     Dosage: 1 MG, UNK
     Dates: start: 20130306, end: 20130714
  24. CISPLATIN [Concomitant]
     Dosage: 116 MG, UNK
     Dates: start: 20130313, end: 20130620
  25. ALIMTA [Concomitant]
     Dosage: 755 MG, UNK
     Dates: start: 20130313, end: 20130620
  26. METHYLPREDNISOLONE [Concomitant]
     Indication: DEHYDRATION
     Dosage: 40 MG, UNK
     Dates: start: 20130417, end: 20130417
  27. DECADRON                           /00016001/ [Concomitant]
     Indication: NAUSEA
     Dosage: 4 MG, UNK
     Dates: start: 20130312, end: 20130606
  28. TEMAZEPAM [Concomitant]
     Indication: INSOMNIA
     Dosage: 115 MG, UNK
     Dates: start: 20130417, end: 20130620
  29. AMITRIPTYLINE [Concomitant]
     Indication: PAIN
     Dosage: 10 MG, UNK
     Dates: start: 20130605, end: 20130620

REACTIONS (4)
  - Malignant ascites [Fatal]
  - Leukocytosis [Recovered/Resolved]
  - Non-cardiac chest pain [Recovered/Resolved]
  - Abdominal pain [Recovered/Resolved]
